FAERS Safety Report 8787559 (Version 2)
Quarter: 2015Q2

REPORT INFORMATION
  Report Type: Report from Study
  Country: US (occurrence: US)
  Receive Date: 20120914
  Receipt Date: 20150625
  Transmission Date: 20150821
  Serious: Yes (Death)
  Sender: FDA-Public Use
  Company Number: US-ROCHE-1127458

PATIENT
  Age: 76 Year
  Sex: Female
  Weight: 72.87 kg

DRUGS (37)
  1. AVASTIN [Suspect]
     Active Substance: BEVACIZUMAB
     Dosage: THERAY RECEIVED DATES: 21/SEP/2007, 12/OCT/2007
     Route: 042
  2. AVASTIN [Suspect]
     Active Substance: BEVACIZUMAB
     Dosage: THERAPY RECEIVED DATES: 20/APR/2007
     Route: 042
  3. AVASTIN [Suspect]
     Active Substance: BEVACIZUMAB
     Route: 042
     Dates: start: 20060317, end: 20070309
  4. POTASSIUM CHLORIDE. [Concomitant]
     Active Substance: POTASSIUM CHLORIDE
     Route: 065
  5. DOXIL [Concomitant]
     Active Substance: DOXORUBICIN HYDROCHLORIDE
     Route: 042
  6. DEXAMETHASONE. [Concomitant]
     Active Substance: DEXAMETHASONE
     Route: 048
  7. ATIVAN [Concomitant]
     Active Substance: LORAZEPAM
     Indication: ANXIETY
     Route: 048
  8. RESTORIL [Concomitant]
     Active Substance: TEMAZEPAM
     Route: 048
  9. LABETALOL [Concomitant]
     Active Substance: LABETALOL\LABETALOL HYDROCHLORIDE
     Route: 048
  10. REGLAN [Concomitant]
     Active Substance: METOCLOPRAMIDE HYDROCHLORIDE
     Route: 048
  11. DIPHENHYDRAMINE HCL [Concomitant]
     Active Substance: DIPHENHYDRAMINE HYDROCHLORIDE
     Route: 042
  12. RANITIDINE HYDROCHLORIDE. [Concomitant]
     Active Substance: RANITIDINE HYDROCHLORIDE
     Route: 048
  13. PROTONIX (UNITED STATES) [Concomitant]
  14. NEULASTA [Concomitant]
     Active Substance: PEGFILGRASTIM
     Route: 058
  15. BENADRYL [Concomitant]
     Active Substance: DIPHENHYDRAMINE HYDROCHLORIDE
     Route: 042
  16. RANITIDINE HYDROCHLORIDE. [Concomitant]
     Active Substance: RANITIDINE HYDROCHLORIDE
     Route: 042
  17. NORVASC [Concomitant]
     Active Substance: AMLODIPINE BESYLATE
     Route: 048
  18. INFLUENZA VACCINES [Concomitant]
     Active Substance: INFLUENZA VIRUS VACCINE
     Route: 030
  19. TAXOL [Concomitant]
     Active Substance: PACLITAXEL
     Route: 065
  20. PREVACID [Concomitant]
     Active Substance: LANSOPRAZOLE
     Route: 048
  21. FERRLECIT (UNITED STATES) [Concomitant]
     Route: 042
  22. AVASTIN [Suspect]
     Active Substance: BEVACIZUMAB
     Indication: GENITAL NEOPLASM MALIGNANT FEMALE
     Route: 042
     Dates: start: 20070330
  23. AVASTIN [Suspect]
     Active Substance: BEVACIZUMAB
     Dosage: THERAPY RECEIVED DATES: 10/AUG/2007
     Route: 042
  24. CARBOPLATIN. [Concomitant]
     Active Substance: CARBOPLATIN
     Route: 042
     Dates: start: 20070330
  25. AVASTIN [Suspect]
     Active Substance: BEVACIZUMAB
     Dosage: THERAPY RECEIVED DATES: 25/MAY/2007, 08/JUN/2007, 22/JUN/2007, 06/JUL/2007
     Route: 042
  26. CARBOPLATIN. [Concomitant]
     Active Substance: CARBOPLATIN
     Route: 042
  27. GRANISETRON HYDROCHLORIDE. [Concomitant]
     Active Substance: GRANISETRON HYDROCHLORIDE
     Route: 042
  28. DARBEPOETIN ALFA [Concomitant]
     Active Substance: DARBEPOETIN ALFA
     Route: 058
  29. DEXAMETHASONE. [Concomitant]
     Active Substance: DEXAMETHASONE
     Route: 048
  30. ZITHROMAX [Concomitant]
     Active Substance: AZITHROMYCIN DIHYDRATE
     Route: 048
  31. DEXAMETHASONE SODIUM PHOSPHATE. [Concomitant]
     Active Substance: DEXAMETHASONE SODIUM PHOSPHATE
     Route: 042
  32. DOXIL [Concomitant]
     Active Substance: DOXORUBICIN HYDROCHLORIDE
     Route: 042
  33. ONDANSETRON HYDROCHLORIDE. [Concomitant]
     Active Substance: ONDANSETRON HYDROCHLORIDE
     Route: 042
  34. LORAZEPAM. [Concomitant]
     Active Substance: LORAZEPAM
     Route: 042
  35. DIOVAN [Concomitant]
     Active Substance: VALSARTAN
     Route: 048
  36. LASIX [Concomitant]
     Active Substance: FUROSEMIDE
     Route: 048
  37. PACLITAXEL. [Concomitant]
     Active Substance: PACLITAXEL
     Route: 042

REACTIONS (20)
  - Off label use [Unknown]
  - Insomnia [Unknown]
  - Neuropathy peripheral [Unknown]
  - Pleural effusion [Recovered/Resolved]
  - Diverticulum [Unknown]
  - Fatigue [Unknown]
  - Dyspnoea [Unknown]
  - Restless legs syndrome [Unknown]
  - Pruritus [Unknown]
  - Death [Fatal]
  - Alopecia [Unknown]
  - Palpitations [Unknown]
  - Constipation [Recovered/Resolved]
  - Haemorrhoids [Unknown]
  - Depression [Unknown]
  - Haematoma [Unknown]
  - Muscular weakness [Unknown]
  - Dizziness [Unknown]
  - Throat tightness [Unknown]
  - Cough [Unknown]

NARRATIVE: CASE EVENT DATE: 20071013
